FAERS Safety Report 4285912-4 (Version None)
Quarter: 2004Q1

REPORT INFORMATION
  Report Type: 
  Country: None (occurrence: None)
  Receive Date: 20040205
  Receipt Date: 20040203
  Transmission Date: 20041129
  Serious: Yes (Other)
  Sender: FDA-Public Use
  Company Number: US-GLAXOSMITHKLINE-A0496321A

PATIENT
  Age: 61 Year
  Sex: Male

DRUGS (3)
  1. ADVAIR DISKUS 100/50 [Suspect]
     Dosage: 1PUFF TWICE PER DAY
     Route: 055
     Dates: start: 20020226, end: 20020314
  2. PREDNISONE [Concomitant]
  3. ALBUTEROL [Concomitant]

REACTIONS (2)
  - GASTRIC DISORDER [None]
  - GASTRIC ULCER [None]
